FAERS Safety Report 12397214 (Version 1)
Quarter: 2016Q2

REPORT INFORMATION
  Report Type: Spontaneous
  Country: US (occurrence: None)
  Receive Date: 20160523
  Receipt Date: 20160523
  Transmission Date: 20160815
  Serious: No
  Sender: FDA-Public Use
  Company Number: None

PATIENT
  Age: 45 Year
  Sex: Female
  Weight: 73.66 kg

DRUGS (1)
  1. EXJADE [Suspect]
     Active Substance: DEFERASIROX
     Route: 048
     Dates: start: 20160517, end: 20160519

REACTIONS (2)
  - Nausea [None]
  - Hypersensitivity [None]

NARRATIVE: CASE EVENT DATE: 20160517
